FAERS Safety Report 10137175 (Version 1)
Quarter: 2014Q2

REPORT INFORMATION
  Report Type: Spontaneous
  Country: US (occurrence: US)
  Receive Date: 20140429
  Receipt Date: 20140429
  Transmission Date: 20141212
  Serious: No
  Sender: FDA-Public Use
  Company Number: US-ABBVIE-14P-163-1219387-00

PATIENT
  Sex: Male
  Weight: 113.5 kg

DRUGS (9)
  1. ANDROGEL [Suspect]
     Indication: BLOOD TESTOSTERONE DECREASED
     Dates: start: 20140301
  2. LEVOTHYROXINE [Concomitant]
     Indication: THYROID DISORDER
  3. BABY ASPIRIN [Concomitant]
     Indication: CARDIAC DISORDER
  4. SIMVASTATIN [Concomitant]
     Indication: BLOOD CHOLESTEROL INCREASED
  5. RANITIDINE [Concomitant]
     Indication: DYSPEPSIA
  6. ESCITALOPRAM [Concomitant]
     Indication: ANXIETY
  7. METOPROLOL [Concomitant]
     Indication: HYPERTENSION
  8. MULTIVITAMIN [Concomitant]
     Indication: VITAMIN SUPPLEMENTATION
  9. VITAMIN D [Concomitant]
     Indication: VITAMIN SUPPLEMENTATION

REACTIONS (3)
  - Fatigue [Not Recovered/Not Resolved]
  - Loss of libido [Not Recovered/Not Resolved]
  - Drug ineffective [Not Recovered/Not Resolved]
